FAERS Safety Report 8579545-9 (Version None)
Quarter: 2012Q3

REPORT INFORMATION
  Report Type: 
  Country: None (occurrence: None)
  Receive Date: 20120808
  Receipt Date: 20120803
  Transmission Date: 20120928
  Serious: No
  Sender: FDA-Public Use
  Company Number: US-B.I. PHARMACEUTICALS,INC./RIDGEFIELD-2012-BP-17691BP

PATIENT
  Sex: Female

DRUGS (2)
  1. DIURETICS [Concomitant]
  2. PRADAXA [Suspect]
     Route: 048

REACTIONS (1)
  - BLOOD CREATININE INCREASED [None]
